FAERS Safety Report 7308960-6 (Version None)
Quarter: 2011Q1

REPORT INFORMATION
  Report Type: 
  Country: None (occurrence: None)
  Receive Date: 20110223
  Receipt Date: 20110203
  Transmission Date: 20110831
  Serious: Yes (Other)
  Sender: FDA-Public Use
  Company Number: US-BAYER-2011-011706

PATIENT
  Sex: Male
  Weight: 91 kg

DRUGS (3)
  1. NEURONTIN [Concomitant]
  2. ALKA-SELTZER PLUS DAY COLD [Suspect]
     Indication: NASOPHARYNGITIS
     Dosage: BOTTLE COUNT 20CT
     Dates: start: 20110126
  3. LITHIUM [Concomitant]

REACTIONS (7)
  - CONFUSIONAL STATE [None]
  - NAUSEA [None]
  - BALANCE DISORDER [None]
  - DIZZINESS [None]
  - CONTUSION [None]
  - HEAD INJURY [None]
  - CONCUSSION [None]
